FAERS Safety Report 13334182 (Version 2)
Quarter: 2017Q2

REPORT INFORMATION
  Report Type: Spontaneous
  Country: JP (occurrence: JP)
  Receive Date: 20170314
  Receipt Date: 20170411
  Transmission Date: 20170830
  Serious: Yes (Hospitalization, Other)
  Sender: FDA-Public Use
  Company Number: JP-JNJFOC-20170312486

PATIENT
  Age: 59 Year
  Sex: Male
  Weight: 20.41 kg

DRUGS (2)
  1. ZYTIGA [Suspect]
     Active Substance: ABIRATERONE ACETATE
     Indication: HORMONE-REFRACTORY PROSTATE CANCER
     Route: 048
     Dates: start: 20161019, end: 20170222
  2. PACLITAXEL. [Interacting]
     Active Substance: PACLITAXEL
     Indication: NEOPLASM MALIGNANT
     Route: 041
     Dates: start: 20170213

REACTIONS (3)
  - Hepatic enzyme increased [Recovered/Resolved]
  - Drug interaction [Unknown]
  - Neutrophil count decreased [Recovered/Resolved]

NARRATIVE: CASE EVENT DATE: 20170213
